FAERS Safety Report 10052976 (Version 1)
Quarter: 2014Q2

REPORT INFORMATION
  Report Type: Spontaneous
  Country: AU (occurrence: AU)
  Receive Date: 20140402
  Receipt Date: 20140402
  Transmission Date: 20141212
  Serious: Yes (Death, Other)
  Sender: FDA-Public Use
  Company Number: PHHY2014AU037017

PATIENT
  Age: 85 Year
  Sex: Female

DRUGS (2)
  1. WARFARIN [Suspect]
  2. ENOXAPARIN [Concomitant]

REACTIONS (9)
  - Renal failure [Fatal]
  - Renal impairment [Fatal]
  - Sepsis [Fatal]
  - Pyrexia [Fatal]
  - Gangrene [Unknown]
  - Blue toe syndrome [Unknown]
  - Myalgia [Unknown]
  - Rash macular [Recovering/Resolving]
  - Pain [Recovering/Resolving]
